FAERS Safety Report 7076071-3 (Version None)
Quarter: 2010Q4

REPORT INFORMATION
  Report Type: 
  Country: None (occurrence: None)
  Receive Date: 20101101
  Receipt Date: 20101025
  Transmission Date: 20110411
  Serious: No
  Sender: FDA-Public Use
  Company Number: US-BIOGENIDEC-2010BI036999

PATIENT
  Sex: Female

DRUGS (2)
  1. AVONEX [Suspect]
     Indication: MULTIPLE SCLEROSIS
     Route: 030
     Dates: start: 20020101, end: 20020829
  2. AVONEX [Suspect]
     Route: 030
     Dates: start: 20100829

REACTIONS (9)
  - ANKLE OPERATION [None]
  - ANXIETY [None]
  - ARTHRALGIA [None]
  - FEELING HOT [None]
  - HEARING IMPAIRED [None]
  - HYPOAESTHESIA FACIAL [None]
  - INFLUENZA LIKE ILLNESS [None]
  - JOINT SWELLING [None]
  - TREMOR [None]
